FAERS Safety Report 17929749 (Version 7)
Quarter: 2024Q1

REPORT INFORMATION
  Report Type: Spontaneous
  Country: US (occurrence: US)
  Receive Date: 20200623
  Receipt Date: 20240109
  Transmission Date: 20240410
  Serious: No
  Sender: FDA-Public Use
  Company Number: US-PFIZER INC-2020241730

PATIENT
  Age: 78 Year
  Sex: Female
  Weight: 86.621 kg

DRUGS (2)
  1. IBRANCE [Suspect]
     Active Substance: PALBOCICLIB
     Indication: Breast cancer female
     Dosage: 125 MG
  2. IBRANCE [Suspect]
     Active Substance: PALBOCICLIB
     Indication: B-cell lymphoma
     Dosage: 100 MG, 28-DAY SUPPLY, P.O. DAILY FOR 21 DAYS OFF 7 DAYS
     Route: 048

REACTIONS (3)
  - Arthritis [Unknown]
  - Neoplasm progression [Unknown]
  - Osteoarthritis [Unknown]
